FAERS Safety Report 10610011 (Version 1)
Quarter: 2014Q4

REPORT INFORMATION
  Report Type: Spontaneous
  Country: US (occurrence: US)
  Receive Date: 20141126
  Receipt Date: 20141126
  Transmission Date: 20150529
  Serious: No
  Sender: FDA-Public Use
  Company Number: US-SHIRE-US201407682

PATIENT
  Age: 58 Year
  Sex: Female

DRUGS (1)
  1. LIALDA [Suspect]
     Active Substance: MESALAMINE
     Indication: CROHN^S DISEASE
     Dosage: 2.4 G, (TWO 1.2 G) UNKNOWN (DAY)
     Route: 048
     Dates: start: 2013

REACTIONS (2)
  - Condition aggravated [Unknown]
  - Product use issue [Unknown]

NARRATIVE: CASE EVENT DATE: 2013
